FAERS Safety Report 15972657 (Version 1)
Quarter: 2019Q1

REPORT INFORMATION
  Report Type: Spontaneous
  Country: FR (occurrence: FR)
  Receive Date: 20190216
  Receipt Date: 20190216
  Transmission Date: 20190418
  Serious: Yes (Hospitalization)
  Sender: FDA-Public Use
  Company Number: FR-ACCORD-107553

PATIENT
  Age: 71 Year
  Sex: Male

DRUGS (8)
  1. ENALAPRIL [Suspect]
     Active Substance: ENALAPRIL
     Dosage: 2 CP
     Route: 048
     Dates: start: 20180606, end: 20180606
  2. RAMIPRIL. [Suspect]
     Active Substance: RAMIPRIL
     Route: 048
     Dates: start: 20180606, end: 20180606
  3. VENTOLINE [Concomitant]
     Active Substance: ALBUTEROL
     Indication: ASTHMA
     Route: 048
  4. ZOLPIDEM [Suspect]
     Active Substance: ZOLPIDEM\ZOLPIDEM TARTRATE
     Dosage: 1 CP
     Route: 048
     Dates: start: 20180606, end: 20180606
  5. NATISPRAY [Concomitant]
     Active Substance: NITROGLYCERIN
     Indication: ANGINA PECTORIS
     Dosage: SI BESOIN
     Route: 048
  6. FLUTICASONE PROPIONATE/SALMETEROL XINAFOATE [Concomitant]
     Indication: ASTHMA
     Dosage: SI BESOIN
     Route: 048
  7. METFORMIN [Suspect]
     Active Substance: METFORMIN HYDROCHLORIDE
     Dosage: 2 CP
     Route: 048
     Dates: start: 20180606, end: 20180606
  8. ZOPICLONE [Suspect]
     Active Substance: ZOPICLONE
     Dosage: 2 CP
     Route: 048
     Dates: start: 20180606, end: 20180606

REACTIONS (3)
  - Poisoning deliberate [Unknown]
  - Dysarthria [Recovered/Resolved]
  - Somnolence [Recovered/Resolved]

NARRATIVE: CASE EVENT DATE: 20180606
